FAERS Safety Report 16538866 (Version 4)
Quarter: 2019Q3

REPORT INFORMATION
  Report Type: Spontaneous
  Country: FR (occurrence: FR)
  Receive Date: 20190708
  Receipt Date: 20190913
  Transmission Date: 20191004
  Serious: Yes (Hospitalization, Other)
  Sender: FDA-Public Use
  Company Number: FR-AMGEN-FRASP2019106929

PATIENT
  Age: 76 Year
  Sex: Female
  Weight: 56 kg

DRUGS (3)
  1. CLOPIDOGREL [Suspect]
     Active Substance: CLOPIDOGREL BISULFATE
     Indication: MYOCARDIAL ISCHAEMIA
  2. CLOPIDOGREL [Suspect]
     Active Substance: CLOPIDOGREL BISULFATE
     Indication: INTESTINAL ISCHAEMIA
     Dosage: UNK
     Route: 065
     Dates: start: 20190116, end: 20190626
  3. PARSABIV [Suspect]
     Active Substance: ETELCALCETIDE HYDROCHLORIDE
     Indication: HYPERPARATHYROIDISM SECONDARY
     Dosage: 5 MILLIGRAM, Q3WK
     Route: 042
     Dates: start: 20180801

REACTIONS (3)
  - Fat necrosis [Not Recovered/Not Resolved]
  - Hypersensitivity vasculitis [Not Recovered/Not Resolved]
  - Myocardial ischaemia [Not Recovered/Not Resolved]

NARRATIVE: CASE EVENT DATE: 201801
